FAERS Safety Report 8154960-6 (Version None)
Quarter: 2012Q1

REPORT INFORMATION
  Report Type: 
  Country: None (occurrence: None)
  Receive Date: 20120221
  Receipt Date: 20120217
  Transmission Date: 20120608
  Serious: Yes (Other)
  Sender: FDA-Public Use
  Company Number: PHEH2011US07319

PATIENT
  Sex: Female

DRUGS (4)
  1. CALCITONIN SALMON [Suspect]
     Dosage: 1 DF, QD
     Route: 045
     Dates: end: 20110601
  2. FORTICAL [Suspect]
     Dosage: 200 MG, QD
  3. PREMARIN [Concomitant]
  4. CARDIOVASCULAR DRUGS [Concomitant]
     Route: 065

REACTIONS (2)
  - BONE DENSITY DECREASED [None]
  - RHINITIS [None]
